FAERS Safety Report 14658338 (Version 1)
Quarter: 2018Q1

REPORT INFORMATION
  Report Type: Spontaneous
  Country: SA (occurrence: SA)
  Receive Date: 20180320
  Receipt Date: 20180320
  Transmission Date: 20180509
  Serious: Yes (Other)
  Sender: FDA-Public Use
  Company Number: SA-LUPIN PHARMACEUTICALS INC.-2018-02140

PATIENT
  Age: 8 Year
  Sex: Female
  Weight: 20 kg

DRUGS (4)
  1. VANCOMYCIN [Suspect]
     Active Substance: VANCOMYCIN
     Indication: PNEUMONIA NECROTISING
     Dosage: 60 MG/KG, QD
     Route: 065
  2. PIPERACILIN/TAZOBACTAM [Interacting]
     Active Substance: PIPERACILLIN SODIUM\TAZOBACTAM SODIUM
     Indication: PNEUMONIA NECROTISING
     Dosage: 300 MG/KG, QD
     Route: 065
  3. PIPERACILIN/TAZOBACTAM [Interacting]
     Active Substance: PIPERACILLIN SODIUM\TAZOBACTAM SODIUM
     Indication: PYREXIA
  4. VANCOMYCIN [Interacting]
     Active Substance: VANCOMYCIN
     Indication: PYREXIA
     Dosage: 80 MG/KG, QD
     Route: 065

REACTIONS (2)
  - Drug interaction [Unknown]
  - Acute kidney injury [Recovered/Resolved]
